FAERS Safety Report 14547514 (Version 3)
Quarter: 2018Q1

REPORT INFORMATION
  Report Type: Spontaneous
  Country: JP (occurrence: JP)
  Receive Date: 20180219
  Receipt Date: 20180306
  Transmission Date: 20180509
  Serious: Yes (Hospitalization, Other)
  Sender: FDA-Public Use
  Company Number: JP-009507513-1801JPN001488J

PATIENT
  Age: 79 Year
  Sex: Female
  Weight: 63 kg

DRUGS (19)
  1. NOLVADEX [Concomitant]
     Active Substance: TAMOXIFEN CITRATE
     Indication: BREAST CANCER
     Dosage: 20 MG, QD
     Route: 048
  2. PROPRANOLOL HYDROCHLORIDE. [Concomitant]
     Active Substance: PROPRANOLOL HYDROCHLORIDE
     Indication: HYPERTENSION
     Dosage: 60 MG, QD
     Route: 048
  3. SENNOSIDE [Concomitant]
     Active Substance: SENNOSIDES
     Indication: CONSTIPATION
     Dosage: 24 MG, QD
     Route: 048
  4. REBAMIPIDE [Concomitant]
     Active Substance: REBAMIPIDE
     Indication: GASTRITIS
     Dosage: 100 MG, TID
     Route: 048
  5. MAPROMIL [Concomitant]
     Indication: DEPRESSION
     Dosage: 10 MG, QD
     Route: 048
  6. NESINA [Suspect]
     Active Substance: ALOGLIPTIN BENZOATE
     Indication: DIABETES MELLITUS
     Dosage: 25 MG, QD
     Route: 048
     Dates: end: 20180114
  7. CODEINE PHOSPHATE HYDRATE [Concomitant]
     Active Substance: CODEINE PHOSPHATE
     Indication: COUGH
     Dosage: 20 MG, BID
     Route: 048
     Dates: start: 20171227
  8. BAYASPIRIN [Concomitant]
     Active Substance: ASPIRIN
     Dosage: 100 MG, QD
     Route: 048
  9. KEYTRUDA [Suspect]
     Active Substance: PEMBROLIZUMAB
     Indication: TRANSITIONAL CELL CARCINOMA
     Dosage: 200 MG, Q3W
     Route: 041
     Dates: start: 20171228, end: 20171228
  10. MICARDIS [Concomitant]
     Active Substance: TELMISARTAN
     Indication: HYPERTENSION
     Dosage: 40 MG, QD
     Route: 048
  11. ZOPICLONE [Concomitant]
     Active Substance: ZOPICLONE
     Indication: INSOMNIA
     Dosage: 7.5 MG, QD
     Route: 048
  12. AMARYL [Suspect]
     Active Substance: GLIMEPIRIDE
     Indication: DIABETES MELLITUS
     Dosage: 1 MG, BID
     Route: 048
     Dates: end: 20180114
  13. AMLODIPINE [Concomitant]
     Active Substance: AMLODIPINE BESYLATE
     Indication: HYPERTENSION
     Dosage: 5 MG, QD
     Route: 048
  14. EVAMYL [Concomitant]
     Active Substance: LORMETAZEPAM
     Indication: INSOMNIA
     Dosage: 1.0 MG, QD
     Route: 048
  15. URSO [Concomitant]
     Active Substance: URSODIOL
     Indication: LIVER DISORDER
     Dosage: 200 MG, BID
     Route: 048
  16. ETIZOLAM [Concomitant]
     Active Substance: ETIZOLAM
     Indication: INSOMNIA
     Dosage: 0.5 MG, QD
     Route: 048
  17. ALENDRONATE [Concomitant]
     Active Substance: ALENDRONATE SODIUM
     Indication: OSTEOPOROSIS
     Dosage: 35 MG, QD
     Route: 048
  18. TAKEPRON [Concomitant]
     Active Substance: LANSOPRAZOLE
     Indication: GASTRITIS
     Dosage: 15 MG, QD
     Route: 048
  19. PAXIL CR [Concomitant]
     Active Substance: PAROXETINE HYDROCHLORIDE
     Indication: DEPRESSION
     Dosage: 12.5 MG, QD
     Route: 048

REACTIONS (2)
  - Malignant neoplasm progression [Unknown]
  - Hypoglycaemia [Recovered/Resolved]

NARRATIVE: CASE EVENT DATE: 201801
